FAERS Safety Report 9055508 (Version 2)
Quarter: 2013Q2

REPORT INFORMATION
  Report Type: Spontaneous
  Country: US (occurrence: US)
  Receive Date: 20130206
  Receipt Date: 20130408
  Transmission Date: 20140414
  Serious: Yes (Disabling)
  Sender: FDA-Public Use
  Company Number: US-GLAXOSMITHKLINE-A1010156A

PATIENT
  Age: 60 Year
  Sex: Female

DRUGS (2)
  1. VOTRIENT [Suspect]
     Indication: PRODUCT USED FOR UNKNOWN INDICATION
     Dosage: 800MG PER DAY
     Route: 048
  2. NO CONCURRENT MEDICATION [Concomitant]

REACTIONS (6)
  - Infection [Unknown]
  - Rash [Unknown]
  - Skin fissures [Unknown]
  - Breast swelling [Unknown]
  - Skin haemorrhage [Unknown]
  - Tremor [Unknown]
